FAERS Safety Report 6460295-X (Version None)
Quarter: 2009Q4

REPORT INFORMATION
  Report Type: 
  Country: None (occurrence: None)
  Receive Date: 20091130
  Receipt Date: 20091120
  Transmission Date: 20100525
  Serious: Yes (Hospitalization)
  Sender: FDA-Public Use
  Company Number: PHHO2009CA13183

PATIENT
  Sex: Female
  Weight: 52.4 kg

DRUGS (4)
  1. AFINITOR [Suspect]
     Indication: METASTATIC GASTRIC CANCER
     Dosage: UNK
     Route: 048
     Dates: start: 20090924, end: 20091020
  2. SENOKOT [Concomitant]
     Indication: CONSTIPATION
     Dosage: UNK
     Route: 048
     Dates: start: 20070101
  3. OMEPRAZOLE [Concomitant]
     Indication: GASTRITIS
     Dosage: UNK
     Route: 048
     Dates: start: 20070101
  4. CODEINE [Concomitant]
     Indication: ABDOMINAL PAIN
     Dosage: UNK
     Route: 048
     Dates: start: 20070101

REACTIONS (12)
  - ABDOMINAL PAIN LOWER [None]
  - DISCOMFORT [None]
  - DYSPNOEA [None]
  - FATIGUE [None]
  - GASTROINTESTINAL ISCHAEMIA [None]
  - GASTROINTESTINAL ULCER [None]
  - MALAISE [None]
  - MELAENA [None]
  - NAUSEA [None]
  - REFLUX GASTRITIS [None]
  - UPPER GASTROINTESTINAL HAEMORRHAGE [None]
  - VOMITING [None]
